FAERS Safety Report 6993868-6 (Version None)
Quarter: 2010Q3

REPORT INFORMATION
  Report Type: 
  Country: None (occurrence: None)
  Receive Date: 20100917
  Receipt Date: 20090721
  Transmission Date: 20110219
  Serious: Yes (Other)
  Sender: FDA-Public Use
  Company Number: US-ASTRAZENECA-2007UW05181

PATIENT
  Age: 11354 Day
  Sex: Female

DRUGS (5)
  1. SEROQUEL [Suspect]
     Dosage: 200-300 MG
     Route: 048
     Dates: start: 20030905
  2. TRAZODONE HCL [Concomitant]
     Indication: SLEEP DISORDER
     Dosage: 50 MG ONE TO TWO TABLETS AT NIGHT IF NEEDED
     Route: 048
     Dates: start: 20050817
  3. FLUOXETINE [Concomitant]
     Dosage: 10 TO 20 MG DAILY
     Route: 048
     Dates: start: 20051217
  4. LISINOPRIL [Concomitant]
     Dates: start: 20060808
  5. LIPITOR [Concomitant]
     Dates: start: 20060808

REACTIONS (4)
  - DIABETES MELLITUS [None]
  - KETOACIDOSIS [None]
  - PANCREATITIS [None]
  - TYPE 2 DIABETES MELLITUS [None]
